FAERS Safety Report 4280316-2 (Version None)
Quarter: 2004Q1

REPORT INFORMATION
  Report Type: 
  Country: None (occurrence: None)
  Receive Date: 20040126
  Receipt Date: 20040115
  Transmission Date: 20041129
  Serious: Yes (Hospitalization)
  Sender: FDA-Public Use
  Company Number: UK059122

PATIENT
  Age: 65 Year
  Sex: Female
  Weight: 63 kg

DRUGS (2)
  1. ARANESP [Suspect]
     Indication: ANAEMIA OF MALIGNANT DISEASE
     Dosage: 300 MCG, WEEKLY, SC
     Route: 058
     Dates: start: 20030612, end: 20030618
  2. IRINOTECAN [Concomitant]

REACTIONS (5)
  - CATHETER RELATED INFECTION [None]
  - DRUG INEFFECTIVE [None]
  - GINGIVITIS [None]
  - PYREXIA [None]
  - STAPHYLOCOCCAL INFECTION [None]
